FAERS Safety Report 24078881 (Version 1)
Quarter: 2024Q3

REPORT INFORMATION
  Report Type: Spontaneous
  Country: US (occurrence: None)
  Receive Date: 20240710
  Receipt Date: 20240710
  Transmission Date: 20241017
  Serious: Yes (Other)
  Sender: Public
  Company Number: None

PATIENT
  Sex: Male
  Weight: 99.79 kg

DRUGS (9)
  1. ELIQUIS [Suspect]
     Active Substance: APIXABAN
     Indication: Pulmonary embolism
     Dosage: 5 MG DAILY ORAL
     Route: 048
     Dates: start: 20240119
  2. MODAFANIL [Concomitant]
  3. HYDROMORPHONE [Concomitant]
  4. AMLODIPINE [Concomitant]
  5. OMEPRAZOLE [Concomitant]
  6. VITAMIN D3 [Concomitant]
  7. EZETIMIBE [Concomitant]
  8. LOSARTAN [Concomitant]
  9. CHLORTHALIDONE [Concomitant]

REACTIONS (2)
  - Thrombosis [None]
  - Therapy change [None]
